FAERS Safety Report 7784459-8 (Version None)
Quarter: 2011Q3

REPORT INFORMATION
  Report Type: 
  Country: None (occurrence: None)
  Receive Date: 20110928
  Receipt Date: 20110919
  Transmission Date: 20111222
  Serious: Yes (Other)
  Sender: FDA-Public Use
  Company Number: US-BAYER-201035245NA

PATIENT
  Age: 26 Year
  Sex: Female
  Weight: 58.957 kg

DRUGS (2)
  1. YASMIN [Suspect]
     Indication: CONTRACEPTION
     Dosage: UNK
     Route: 048
  2. YAZ [Suspect]
     Indication: CONTRACEPTION
     Route: 048

REACTIONS (5)
  - PREMATURE BABY [None]
  - MENORRHAGIA [None]
  - DYSPNOEA [None]
  - PREGNANCY WITH YOUNG MATERNAL AGE [None]
  - THROMBOSIS [None]
